FAERS Safety Report 24189883 (Version 1)
Quarter: 2024Q3

REPORT INFORMATION
  Report Type: Spontaneous
  Country: US (occurrence: US)
  Receive Date: 20240808
  Receipt Date: 20240808
  Transmission Date: 20241017
  Serious: Yes (Other)
  Sender: NOVARTIS
  Company Number: US-002147023-NVSC2024US160536

PATIENT
  Age: 77 Year
  Sex: Female
  Weight: 65.306 kg

DRUGS (2)
  1. KISQALI [Suspect]
     Active Substance: RIBOCICLIB
     Indication: Metastases to bone
     Dosage: 600 MG, QD
     Route: 048
     Dates: start: 20240803
  2. KISQALI [Suspect]
     Active Substance: RIBOCICLIB
     Indication: Metastases to breast

REACTIONS (4)
  - Pruritus [Unknown]
  - Dry skin [Unknown]
  - Alopecia [Unknown]
  - Rash [Recovered/Resolved]

NARRATIVE: CASE EVENT DATE: 20240806
